FAERS Safety Report 15082660 (Version 2)
Quarter: 2018Q3

REPORT INFORMATION
  Report Type: Report from Study
  Country: AU (occurrence: AU)
  Receive Date: 20180628
  Receipt Date: 20180703
  Transmission Date: 20181010
  Serious: Yes (Hospitalization, Other)
  Sender: FDA-Public Use
  Company Number: AU-ROCHE-2013987

PATIENT
  Age: 62 Year
  Sex: Female
  Weight: 107 kg

DRUGS (10)
  1. LEUCOVORIN CALCIUM. [Concomitant]
     Active Substance: LEUCOVORIN CALCIUM
     Dosage: WITH METHOTREXATE
     Route: 048
  2. DIABEX [Concomitant]
     Active Substance: METFORMIN HYDROCHLORIDE
     Indication: DIABETES MELLITUS
     Route: 048
     Dates: start: 20170731
  3. DEXTROPROPOXYPHENE [Concomitant]
     Active Substance: PROPOXYPHENE HYDROCHLORIDE
     Dosage: 32.5/325 MG 1 TO 2 QID PRN
     Route: 048
     Dates: start: 20120725
  4. BRICANYL [Concomitant]
     Active Substance: TERBUTALINE SULFATE
     Indication: ASTHMA
     Route: 065
     Dates: start: 20180606
  5. EFFEXOR XR [Concomitant]
     Active Substance: VENLAFAXINE HYDROCHLORIDE
     Route: 048
     Dates: start: 20180312
  6. ACTEMRA [Suspect]
     Active Substance: TOCILIZUMAB
     Indication: RHEUMATOID ARTHRITIS
     Route: 042
     Dates: start: 20120306
  7. ACTEMRA [Suspect]
     Active Substance: TOCILIZUMAB
     Route: 042
     Dates: start: 20170803
  8. METHOTREXATE. [Concomitant]
     Active Substance: METHOTREXATE
     Indication: SERONEGATIVE ARTHRITIS
     Route: 048
     Dates: start: 20180606
  9. ENDONE [Concomitant]
     Active Substance: OXYCODONE HYDROCHLORIDE
     Dosage: 1 TO 2 TID PRN
     Route: 048
     Dates: start: 20180301
  10. DITROPAN [Concomitant]
     Active Substance: OXYBUTYNIN CHLORIDE
     Route: 048
     Dates: start: 20180129

REACTIONS (9)
  - Kyphosis [Unknown]
  - Back pain [Not Recovered/Not Resolved]
  - CSF volume increased [Unknown]
  - Lower respiratory tract infection [Recovered/Resolved]
  - Arachnoid cyst [Unknown]
  - Haemangioma [Unknown]
  - Bronchitis [Unknown]
  - Haemoptysis [Unknown]
  - Asthma [Recovered/Resolved]

NARRATIVE: CASE EVENT DATE: 20171020
